FAERS Safety Report 13096623 (Version 2)
Quarter: 2018Q2

REPORT INFORMATION
  Report Type: Spontaneous
  Country: CA (occurrence: CA)
  Receive Date: 20170109
  Receipt Date: 20180509
  Transmission Date: 20180711
  Serious: Yes (Hospitalization, Other)
  Sender: FDA-Public Use
  Company Number: CA-APOTEX-2017AP005014

PATIENT
  Age: 72 Year
  Sex: Male

DRUGS (3)
  1. LITHIUM CARBONATE. [Suspect]
     Active Substance: LITHIUM CARBONATE
     Dosage: 900 MG, QD
     Route: 065
  2. LITHIUM CARBONATE. [Suspect]
     Active Substance: LITHIUM CARBONATE
     Indication: BIPOLAR DISORDER
     Dosage: 900 MG, QID
     Route: 065
  3. HYDROCHLOROTHIAZIDE. [Suspect]
     Active Substance: HYDROCHLOROTHIAZIDE
     Indication: HYPERTENSION
     Dosage: 12.5 MG, QD
     Route: 065

REACTIONS (8)
  - Somnolence [Recovered/Resolved]
  - Neurotoxicity [Recovered/Resolved]
  - Toxicity to various agents [Recovered/Resolved]
  - Nephrogenic diabetes insipidus [Recovered/Resolved]
  - Gait disturbance [Recovered/Resolved]
  - Acute kidney injury [Recovered/Resolved]
  - Drug interaction [Recovered/Resolved]
  - Dysarthria [Recovered/Resolved]
